FAERS Safety Report 7180634-4 (Version None)
Quarter: 2010Q4

REPORT INFORMATION
  Report Type: 
  Country: None (occurrence: None)
  Receive Date: 20101221
  Receipt Date: 20101213
  Transmission Date: 20110411
  Serious: Yes (Hospitalization, Other)
  Sender: FDA-Public Use
  Company Number: US-US-EMD SERONO, INC.-232164J09USA

PATIENT
  Sex: Female

DRUGS (5)
  1. REBIF [Suspect]
     Indication: MULTIPLE SCLEROSIS
     Route: 058
     Dates: start: 20090330, end: 20100101
  2. REBIF [Suspect]
     Route: 058
     Dates: start: 20100101
  3. WATER PILLS [Suspect]
  4. LEXAPRO [Concomitant]
  5. CYMBALTA [Concomitant]

REACTIONS (17)
  - ABDOMINAL PAIN LOWER [None]
  - BLOOD POTASSIUM DECREASED [None]
  - CHAPPED LIPS [None]
  - DIARRHOEA [None]
  - DYSPHAGIA [None]
  - DYSURIA [None]
  - HAEMATURIA [None]
  - HAIR DISORDER [None]
  - JOINT SWELLING [None]
  - MALAISE [None]
  - NIGHTMARE [None]
  - ONYCHOCLASIS [None]
  - RENAL PAIN [None]
  - TINEA PEDIS [None]
  - URINARY INCONTINENCE [None]
  - VAGINAL HAEMORRHAGE [None]
  - VITAMIN D DECREASED [None]
